FAERS Safety Report 18213620 (Version 1)
Quarter: 2020Q3

REPORT INFORMATION
  Report Type: Spontaneous
  Country: US (occurrence: US)
  Receive Date: 20200831
  Receipt Date: 20200831
  Transmission Date: 20201103
  Serious: No
  Sender: FDA-Public Use
  Company Number: None

PATIENT
  Age: 47 Year
  Sex: Female
  Weight: 83.25 kg

DRUGS (2)
  1. NATURE?THROID [Suspect]
     Active Substance: THYROID, PORCINE
     Indication: HYPOTHYROIDISM
     Dosage: ?          QUANTITY:1 TABLET(S);?
     Route: 048
  2. DO TERRA MULTIVITAMINS [Concomitant]

REACTIONS (11)
  - Temperature intolerance [None]
  - Initial insomnia [None]
  - Adjustment disorder with depressed mood [None]
  - Recalled product administered [None]
  - Myalgia [None]
  - Blood thyroid stimulating hormone increased [None]
  - Malaise [None]
  - Palpitations [None]
  - Fatigue [None]
  - Frequent bowel movements [None]
  - Hot flush [None]

NARRATIVE: CASE EVENT DATE: 20200309
